FAERS Safety Report 10021300 (Version 1)
Quarter: 2014Q1

REPORT INFORMATION
  Report Type: Spontaneous
  Country: US (occurrence: None)
  Receive Date: 20140318
  Receipt Date: 20140318
  Transmission Date: 20141002
  Serious: Yes (Disabling)
  Sender: FDA-Public Use
  Company Number: None

PATIENT
  Age: 60 Year
  Sex: Female
  Weight: 104.33 kg

DRUGS (1)
  1. CLOTRIMAZOLE CREAM 10 MG/G [Suspect]
     Indication: RASH
     Dosage: 1 % EVERY 12 HOUR

REACTIONS (2)
  - Application site burn [None]
  - Application site discolouration [None]
